FAERS Safety Report 8018223-1 (Version None)
Quarter: 2012Q1

REPORT INFORMATION
  Report Type: 
  Country: None (occurrence: None)
  Receive Date: 20120103
  Receipt Date: 20111223
  Transmission Date: 20120608
  Serious: Yes (Hospitalization, Other)
  Sender: FDA-Public Use
  Company Number: CA-ELI_LILLY_AND_COMPANY-CA201112007688

PATIENT
  Age: 69 Year
  Sex: Female

DRUGS (17)
  1. OMEPRAZOLE [Concomitant]
  2. VITAMIN D [Concomitant]
  3. PRADAXA [Concomitant]
  4. VERAPAMIL [Concomitant]
  5. RYTHMOL [Concomitant]
  6. FOSAMAX [Concomitant]
  7. ATORVASTATIN [Concomitant]
  8. FORTEO [Suspect]
     Dosage: 20 UG, QD
     Route: 058
     Dates: start: 20111223
  9. DICLOFENAC [Concomitant]
  10. METFORMIN HCL [Concomitant]
  11. PREDNISONE TAB [Concomitant]
  12. SYNTHROID [Concomitant]
  13. FUROSEMIDE [Concomitant]
  14. GLICLAZIDE [Concomitant]
  15. FORTEO [Suspect]
     Indication: OSTEOPOROSIS
     Dosage: 20 UG, QD
     Route: 058
     Dates: start: 20111028, end: 20111218
  16. SYMBICORT [Concomitant]
  17. CALCIUM ACETATE [Concomitant]

REACTIONS (3)
  - PULMONARY OEDEMA [None]
  - ASTHMA [None]
  - DYSPNOEA [None]
